FAERS Safety Report 5593566-X (Version None)
Quarter: 2007Q4

REPORT INFORMATION
  Report Type: 
  Country: None (occurrence: None)
  Receive Date: 20071214
  Receipt Date: 20070301
  Transmission Date: 20080405
  Serious: Yes (Other)
  Sender: FDA-Public Use
  Company Number: 2007003791

PATIENT
  Age: 43 Year
  Sex: Female
  Weight: 72.1 kg

DRUGS (4)
  1. XANAX [Suspect]
     Dosage: 6 MG (2 MG, 3 IN 1 D)
  2. ZOLOFT [Suspect]
     Dates: start: 20061207
  3. CELEXA [Suspect]
     Dosage: 20 MG (20 MG, 1 IN 1 D)
     Dates: end: 20061207
  4. PREVACID [Concomitant]

REACTIONS (7)
  - DRY MOUTH [None]
  - HALLUCINATION [None]
  - INCONTINENCE [None]
  - PANIC ATTACK [None]
  - POOR QUALITY DRUG ADMINISTERED [None]
  - VOMITING [None]
  - WITHDRAWAL SYNDROME [None]
